FAERS Safety Report 5486688-5 (Version None)
Quarter: 2007Q4

REPORT INFORMATION
  Report Type: 
  Country: None (occurrence: None)
  Receive Date: 20071012
  Receipt Date: 20070926
  Transmission Date: 20080405
  Serious: Yes (Hospitalization)
  Sender: FDA-Public Use
  Company Number: 2007VX002427

PATIENT
  Age: 53 Year
  Sex: Male
  Weight: 68.0396 kg

DRUGS (9)
  1. INTERFERON ALFACON-1 [Suspect]
     Indication: HEPATITIS C
     Dosage: 15 UG; QD; SC
     Route: 058
     Dates: start: 20070109, end: 20070901
  2. RIBAVIRIN [Suspect]
     Indication: HEPATITIS C
     Dosage: 600 MG; QAM; PO; 400 MG;  QPM; PO
     Route: 048
     Dates: start: 20070109, end: 20070901
  3. RIBAVIRIN [Suspect]
     Indication: HEPATITIS C
     Dosage: 600 MG; QAM; PO; 400 MG;  QPM; PO
     Route: 048
     Dates: start: 20070109, end: 20070901
  4. NEXIUM [Concomitant]
  5. MICARDIS [Concomitant]
  6. LACTULOSE [Concomitant]
  7. ZINC SULFATE [Concomitant]
  8. VITAMIN CAP [Concomitant]
  9. REMERON [Concomitant]

REACTIONS (4)
  - HEPATIC FUNCTION ABNORMAL [None]
  - HYPOTENSION [None]
  - PERICARDIAL EFFUSION [None]
  - PLEURAL EFFUSION [None]
